FAERS Safety Report 21313486 (Version 1)
Quarter: 2022Q3

REPORT INFORMATION
  Report Type: Spontaneous
  Country: US (occurrence: US)
  Receive Date: 20220909
  Receipt Date: 20220909
  Transmission Date: 20221026
  Serious: No
  Sender: FDA-Public Use
  Company Number: US-ASTELLAS-2022US030070

PATIENT
  Age: 78 Year
  Sex: Male

DRUGS (3)
  1. XTANDI [Suspect]
     Active Substance: ENZALUTAMIDE
     Indication: Product used for unknown indication
     Route: 065
     Dates: start: 201805
  2. XTANDI [Suspect]
     Active Substance: ENZALUTAMIDE
     Route: 065
  3. XTANDI [Suspect]
     Active Substance: ENZALUTAMIDE
     Dosage: UNK UNK, OTHER (3 CAPSULES OF ENZALUTAMIDE IN THE MORNING AND ONE CAPSULE OF ENZALUTAMIDE AT NIGHT)
     Route: 065

REACTIONS (3)
  - Prostatic specific antigen increased [Unknown]
  - Headache [Unknown]
  - Intentional product misuse [Unknown]
